FAERS Safety Report 17666920 (Version 1)
Quarter: 2020Q2

REPORT INFORMATION
  Report Type: Spontaneous
  Country: US (occurrence: US)
  Receive Date: 20200414
  Receipt Date: 20200414
  Transmission Date: 20200713
  Serious: Yes (Other)
  Sender: FDA-Public Use
  Company Number: US-FRESENIUS KABI-FK202003699

PATIENT
  Sex: Female

DRUGS (1)
  1. GENTAMICIN (MANUFACTURER UNKNOWN) [Suspect]
     Active Substance: GENTAMICIN
     Indication: PRODUCT USED FOR UNKNOWN INDICATION
     Route: 008

REACTIONS (3)
  - Wrong product administered [Recovered/Resolved]
  - Exposure during pregnancy [Recovered/Resolved]
  - Pain [Recovered/Resolved]
